FAERS Safety Report 9592225 (Version 1)
Quarter: 2013Q4

REPORT INFORMATION
  Report Type: Spontaneous
  Country: FR (occurrence: FR)
  Receive Date: 20131004
  Receipt Date: 20131004
  Transmission Date: 20140711
  Serious: Yes (Other)
  Sender: FDA-Public Use
  Company Number: FR-009507513-1310FRA000112

PATIENT
  Age: 1 Year
  Sex: Female

DRUGS (2)
  1. CELESTENE [Suspect]
     Indication: COUGH
     Dosage: UNK
     Route: 048
  2. TOPLEXIL (OXOMEMAZINE) [Suspect]
     Dosage: 1 DF, ONCE
     Route: 048
     Dates: start: 20130819

REACTIONS (2)
  - Drug administration error [Recovered/Resolved]
  - Medication error [Recovered/Resolved]
